FAERS Safety Report 4377176-8 (Version None)
Quarter: 2004Q2

REPORT INFORMATION
  Report Type: 
  Country: None (occurrence: None)
  Receive Date: 20040614
  Receipt Date: 20040614
  Transmission Date: 20050107
  Serious: Yes (Other)
  Sender: FDA-Public Use
  Company Number: None

PATIENT
  Sex: Male
  Weight: 24.0406 kg

DRUGS (13)
  1. RISPERDAL [Suspect]
     Indication: BIPOLAR DISORDER
     Dosage: 1 MG IN AM 2 MG IN PM ORAL
     Route: 048
     Dates: start: 20040401, end: 20040601
  2. GEODON [Suspect]
     Indication: BIPOLAR DISORDER
     Dosage: 20 MG IN AM AND ORAL
     Route: 048
     Dates: start: 20040601, end: 20040610
  3. GEODON [Concomitant]
  4. LAMICTAL [Concomitant]
  5. KLONOPIN [Concomitant]
  6. ABILIFY [Concomitant]
  7. TOPAMAX [Concomitant]
  8. CLONIDINE HCL [Concomitant]
  9. SEROQUEL [Concomitant]
  10. TRILEPTAL [Concomitant]
  11. DEPAKOTE [Concomitant]
  12. LITHIUM [Concomitant]
  13. ZYPREXA [Concomitant]

REACTIONS (1)
  - HAIR GROWTH ABNORMAL [None]
